FAERS Safety Report 7604584-1 (Version None)
Quarter: 2011Q3

REPORT INFORMATION
  Report Type: 
  Country: None (occurrence: None)
  Receive Date: 20110712
  Receipt Date: 20110706
  Transmission Date: 20111222
  Serious: Yes (Other)
  Sender: FDA-Public Use
  Company Number: JP-PFIZER INC-2011137384

PATIENT
  Age: 83 Year
  Sex: Male

DRUGS (11)
  1. AMLODIPINE [Concomitant]
     Indication: HYPERTENSION
     Dosage: 5 MG/DAY
     Route: 048
     Dates: start: 20090101
  2. LOSARTAN POTASSIUM AND HYDROCHLOROTHIAZIDE [Concomitant]
     Indication: HYPERTENSION
     Dosage: UNK
     Route: 048
     Dates: start: 20090101
  3. LYRICA [Suspect]
     Indication: PAIN
     Dosage: 75 MG, 2X/DAY
     Route: 048
     Dates: start: 20110606
  4. NEUROTROPIN [Suspect]
     Indication: PAIN
     Dosage: 4 UNITS/DAY
     Dates: start: 20110101
  5. CANDESARTAN CILEXETIL [Concomitant]
     Indication: HYPERTENSION
     Dosage: 8MG DAILY
     Route: 048
  6. LYRICA [Suspect]
     Indication: SCIATICA
  7. LIPODOWN [Concomitant]
     Indication: HYPERLIPIDAEMIA
     Dosage: 5 MG/DAY
     Route: 048
     Dates: start: 20090101
  8. AMOBAN [Suspect]
     Indication: INSOMNIA
     Dosage: 7.5 MG/DAY
     Route: 048
     Dates: start: 20090101
  9. TIZANIDINE HYDROCHLORIDE [Suspect]
     Indication: PAIN
     Dosage: 1 MG/DAY
     Dates: start: 20110101
  10. MUCOSTA [Concomitant]
     Indication: NAUSEA
     Dosage: UNK
     Route: 048
     Dates: start: 20090101
  11. MAGMITT [Concomitant]
     Indication: CONSTIPATION
     Dosage: 330 MG/DAY
     Dates: start: 20110101

REACTIONS (2)
  - DEMENTIA [None]
  - MEMORY IMPAIRMENT [None]
